FAERS Safety Report 10885501 (Version 2)
Quarter: 2015Q2

REPORT INFORMATION
  Report Type: Report from Study
  Country: JP (occurrence: JP)
  Receive Date: 20150304
  Receipt Date: 20150609
  Transmission Date: 20150821
  Serious: Yes (Other)
  Sender: FDA-Public Use
  Company Number: PHHY2014JP040639

PATIENT
  Age: 68 Year
  Sex: Male
  Weight: 51 kg

DRUGS (8)
  1. GILENYA [Suspect]
     Active Substance: FINGOLIMOD HYDROCHLORIDE
     Dosage: 0.5 MG, QOD
     Route: 048
     Dates: start: 20121116
  2. CRAVIT [Concomitant]
     Active Substance: LEVOFLOXACIN
     Indication: UPPER RESPIRATORY TRACT INFLAMMATION
     Dosage: 500 MG, UNK
     Route: 048
     Dates: start: 20130222, end: 20130303
  3. REMINYL [Concomitant]
     Active Substance: GALANTAMINE
     Indication: IRON DEFICIENCY ANAEMIA
     Dosage: 8 MG, UNK
     Route: 048
     Dates: start: 20130125, end: 20130221
  4. GILENYA [Suspect]
     Active Substance: FINGOLIMOD HYDROCHLORIDE
     Indication: MULTIPLE SCLEROSIS
     Dosage: 0.5 MG, QD
     Route: 048
     Dates: start: 20120905, end: 20121102
  5. ARICEPT [Concomitant]
     Active Substance: DONEPEZIL HYDROCHLORIDE
     Indication: DEMENTIA ALZHEIMER^S TYPE
     Dosage: 5 MG, UNK
     Route: 048
     Dates: end: 20130124
  6. ASPARA POTASSIUM [Concomitant]
     Active Substance: POTASSIUM ASPARTATE
     Indication: HYPOKALAEMIA
     Dosage: 600 MG, UNK
     Route: 048
     Dates: start: 20121005
  7. FERROMIA [Concomitant]
     Active Substance: FERROUS CITRATE
     Indication: IRON DEFICIENCY ANAEMIA
     Dosage: 50 MG, UNK
     Route: 048
  8. REMINYL [Concomitant]
     Active Substance: GALANTAMINE
     Dosage: 16 UNK, UNK
     Route: 048
     Dates: start: 20130122

REACTIONS (5)
  - Oedema peripheral [Recovered/Resolved]
  - Prescribed underdose [Unknown]
  - Off label use [Unknown]
  - Hypertension [Recovering/Resolving]
  - Lymphopenia [Recovering/Resolving]

NARRATIVE: CASE EVENT DATE: 20121102
